FAERS Safety Report 8211324-4 (Version None)
Quarter: 2012Q1

REPORT INFORMATION
  Report Type: 
  Country: None (occurrence: None)
  Receive Date: 20120315
  Receipt Date: 20120315
  Transmission Date: 20120608
  Serious: Yes (Life-Threatening, Other)
  Sender: FDA-Public Use
  Company Number: None

PATIENT
  Age: 51 Year
  Sex: Female
  Weight: 90.718 kg

DRUGS (1)
  1. FENTANYL-100 [Suspect]
     Indication: PROCEDURAL PAIN
     Dosage: 25 MCG
     Route: 062
     Dates: start: 20120311, end: 20120313

REACTIONS (4)
  - DEVICE FAILURE [None]
  - APPLICATION SITE REACTION [None]
  - DEVICE LEAKAGE [None]
  - INCORRECT DOSE ADMINISTERED [None]
